FAERS Safety Report 4359130-5 (Version None)
Quarter: 2004Q2

REPORT INFORMATION
  Report Type: 
  Country: None (occurrence: None)
  Receive Date: 20040512
  Receipt Date: 20040429
  Transmission Date: 20050107
  Serious: Yes (Life-Threatening)
  Sender: FDA-Public Use
  Company Number: 2004SE01961

PATIENT
  Age: 79 Year
  Sex: Female

DRUGS (1)
  1. LOSEC [Suspect]
     Indication: OESOPHAGITIS
     Dates: start: 20000101, end: 20030101

REACTIONS (4)
  - DIFFUSE LARGE B-CELL LYMPHOMA [None]
  - GASTRIC CANCER [None]
  - GASTRIC PH INCREASED [None]
  - HELICOBACTER GASTRITIS [None]
